FAERS Safety Report 5713047-X (Version None)
Quarter: 2008Q2

REPORT INFORMATION
  Report Type: 
  Country: None (occurrence: None)
  Receive Date: 20080422
  Receipt Date: 20080325
  Transmission Date: 20081010
  Serious: Yes (Other)
  Sender: FDA-Public Use
  Company Number: PHNU2008DE01373

PATIENT
  Age: 61 Year
  Sex: Male

DRUGS (1)
  1. EXJADE [Suspect]
     Route: 048

REACTIONS (2)
  - PYREXIA [None]
  - TACHYCARDIA [None]
